FAERS Safety Report 4464238-X (Version None)
Quarter: 2004Q4

REPORT INFORMATION
  Report Type: 
  Country: None (occurrence: None)
  Receive Date: 20041001
  Receipt Date: 20040928
  Transmission Date: 20050328
  Serious: Yes (Life-Threatening, Hospitalization)
  Sender: FDA-Public Use
  Company Number: DE-BRISTOL-MYERS SQUIBB COMPANY-12713939

PATIENT
  Age: 35 Year
  Sex: Male
  Weight: 76 kg

DRUGS (4)
  1. DIDANOSINE EC [Suspect]
     Indication: HIV INFECTION
     Dates: start: 20040512
  2. EFAVIRENZ [Suspect]
     Indication: HIV INFECTION
     Dates: start: 20040512
  3. TENOFOVIR DISOPROXIL FUMARATE [Suspect]
     Indication: HIV INFECTION
     Dates: start: 20040512
  4. ANTIHEMOPHILIC FACTOR (HUMAN) [Concomitant]
     Indication: HAEMOPHILIA
     Dosage: THERAPY SINCE PRIOR TO 1980

REACTIONS (2)
  - FACTOR VIII DEFICIENCY [None]
  - GASTROINTESTINAL HAEMORRHAGE [None]
